FAERS Safety Report 5938305-5 (Version None)
Quarter: 2008Q4

REPORT INFORMATION
  Report Type: 
  Country: None (occurrence: None)
  Receive Date: 20081102
  Receipt Date: 20081020
  Transmission Date: 20090506
  Serious: Yes (Other)
  Sender: FDA-Public Use
  Company Number: GB-BAUSCH-2008BL004498

PATIENT
  Age: 37 Year
  Sex: Male

DRUGS (6)
  1. PREDNISOLONE [Suspect]
     Indication: CONJUNCTIVITIS
     Dates: start: 20040201
  2. PREDNISOLONE [Suspect]
     Dates: start: 20040901
  3. CYCLOSPORINE [Suspect]
     Indication: CONJUNCTIVITIS
     Dates: start: 20040901
  4. MYCOPHENOLATE SODIUM [Suspect]
     Indication: CONJUNCTIVITIS
     Dates: start: 20040901
  5. AZATHIOPRINE [Suspect]
     Indication: CONJUNCTIVITIS
     Dates: start: 20050201
  6. DAPSONE [Suspect]
     Indication: CONJUNCTIVITIS
     Dates: start: 20050201

REACTIONS (2)
  - BLOOD CREATININE INCREASED [None]
  - DRUG INEFFECTIVE [None]
